FAERS Safety Report 8172585 (Version 2)
Quarter: 2013Q1

REPORT INFORMATION
  Report Type: Spontaneous
  Country: US (occurrence: US)
  Receive Date: 20111007
  Receipt Date: 20130315
  Transmission Date: 20140127
  Serious: Yes (Death, Other)
  Sender: FDA-Public Use
  Company Number: US-SANOFI-AVENTIS-2011SA064226

PATIENT
  Sex: Male

DRUGS (2)
  1. PLAVIX [Suspect]
     Indication: MYOCARDIAL INFARCTION
     Route: 065
     Dates: start: 2003, end: 20100918
  2. ASPIRIN [Suspect]
     Route: 065

REACTIONS (3)
  - Gastritis [Fatal]
  - Gastric ulcer [Fatal]
  - Gastrointestinal haemorrhage [Unknown]
